FAERS Safety Report 9081934 (Version 1)
Quarter: 2013Q1

REPORT INFORMATION
  Report Type: Report from Study
  Country: US (occurrence: US)
  Receive Date: 20130130
  Receipt Date: 20130130
  Transmission Date: 20140127
  Serious: No
  Sender: FDA-Public Use
  Company Number: US-ABBOTT-12P-163-0972620-00

PATIENT
  Age: 74 Year
  Sex: Male

DRUGS (8)
  1. HUMIRA 40 MG/0.8 ML PEN [Suspect]
     Indication: PSORIASIS
     Dates: start: 20120817
  2. PSORIASIN [Concomitant]
     Indication: PSORIASIS
     Dosage: OINTMENT
     Route: 061
  3. HYDROCORTISONE [Concomitant]
     Indication: PSORIASIS
     Dosage: CREAM
     Route: 061
  4. CALCIPOTRIENE [Concomitant]
     Indication: PSORIASIS
     Dosage: CREAM, DAILLY
     Route: 061
  5. SIMVASTATIN [Concomitant]
     Indication: BLOOD CHOLESTEROL INCREASED
     Dosage: 20MG DAILY
  6. DILTIAZEM ER [Concomitant]
     Indication: HYPERTENSION
     Dosage: 240MG DAILY
  7. MULTIVITAMIN [Concomitant]
     Indication: VITAMIN SUPPLEMENTATION
  8. VITAMIN C [Concomitant]
     Indication: VITAMIN SUPPLEMENTATION

REACTIONS (1)
  - Psoriasis [Not Recovered/Not Resolved]
